FAERS Safety Report 8188567-1 (Version None)
Quarter: 2012Q1

REPORT INFORMATION
  Report Type: 
  Country: None (occurrence: None)
  Receive Date: 20120306
  Receipt Date: 20120302
  Transmission Date: 20120608
  Serious: Yes (Other)
  Sender: FDA-Public Use
  Company Number: PHHY2012AU015472

PATIENT
  Sex: Female

DRUGS (3)
  1. ESTRADERM [Suspect]
     Dosage: UNK
     Route: 064
  2. ESTRADERM [Suspect]
     Dosage: UNK
     Route: 062
  3. AVAPRO [Concomitant]
     Dosage: 150 MG, UNK

REACTIONS (7)
  - MENOPAUSAL SYMPTOMS [None]
  - BREAST ENLARGEMENT [None]
  - ABDOMINAL DISCOMFORT [None]
  - ABDOMINAL DISTENSION [None]
  - DIZZINESS [None]
  - EXPIRED DRUG ADMINISTERED [None]
  - DRUG DISPENSING ERROR [None]
